APPROVED DRUG PRODUCT: LEVOCARNITINE
Active Ingredient: LEVOCARNITINE
Strength: 1GM/10ML
Dosage Form/Route: SOLUTION;ORAL
Application: A077399 | Product #001
Applicant: HIKMA PHARMACEUTICALS USA INC
Approved: Oct 25, 2007 | RLD: No | RS: No | Type: DISCN